FAERS Safety Report 8961980 (Version 2)
Quarter: 2013Q1

REPORT INFORMATION
  Report Type: Spontaneous
  Country: US (occurrence: US)
  Receive Date: 20121213
  Receipt Date: 20130304
  Transmission Date: 20140127
  Serious: Yes (Hospitalization)
  Sender: FDA-Public Use
  Company Number: US-BIOGENIDEC-2012BI058761

PATIENT
  Age: 30 Year
  Sex: Female

DRUGS (2)
  1. TYSABRI [Suspect]
     Indication: MULTIPLE SCLEROSIS
     Route: 042
     Dates: start: 20120801, end: 20121207
  2. REBIF [Concomitant]
     Dates: start: 201301

REACTIONS (3)
  - Multiple sclerosis relapse [Recovered/Resolved]
  - Nuclear magnetic resonance imaging abnormal [Unknown]
  - Nasopharyngitis [Not Recovered/Not Resolved]
